FAERS Safety Report 7764198-X (Version None)
Quarter: 2011Q3

REPORT INFORMATION
  Report Type: 
  Country: None (occurrence: None)
  Receive Date: 20110916
  Receipt Date: 20110801
  Transmission Date: 20111222
  Serious: Yes (Death, Other)
  Sender: FDA-Public Use
  Company Number: DE-2011-1830

PATIENT
  Age: 64 Year
  Sex: Male

DRUGS (3)
  1. PACLITAXEL [Suspect]
     Indication: NON-SMALL CELL LUNG CANCER
     Dosage: 175 MG/M2 QD IV
     Route: 042
     Dates: start: 20050907, end: 20051019
  2. CISPLATIN [Suspect]
     Indication: NON-SMALL CELL LUNG CANCER
     Dosage: 50 MG/M2, QD, IV
     Route: 042
     Dates: start: 20050907, end: 20051201
  3. NAVELBINE [Suspect]
     Indication: NON-SMALL CELL LUNG CANCER
     Dosage: 20 MG/M2; IV
     Route: 042
     Dates: start: 20051124, end: 20051201

REACTIONS (9)
  - MENTAL DISORDER DUE TO A GENERAL MEDICAL CONDITION [None]
  - METASTASES TO CENTRAL NERVOUS SYSTEM [None]
  - HYPERNATRAEMIA [None]
  - METASTASES TO ADRENALS [None]
  - INFECTIOUS PLEURAL EFFUSION [None]
  - DEPRESSION [None]
  - BRONCHOPNEUMONIA [None]
  - PLEURISY [None]
  - DYSMYELINATION [None]
